FAERS Safety Report 8544335-X (Version None)
Quarter: 2012Q2

REPORT INFORMATION
  Report Type: 
  Country: None (occurrence: None)
  Receive Date: 20120416
  Receipt Date: 20100415
  Transmission Date: 20120825
  Serious: Yes (Other)
  Sender: FDA-Public Use
  Company Number: PHEH2010US23911

PATIENT
  Age: 74 Year
  Sex: Female

DRUGS (4)
  1. VITAMINS (NO INGREDIENTS/SUBSTANCES) [Concomitant]
  2. DIOVAN [Suspect]
     Dosage: 160 MG
  3. ASPIRIN [Concomitant]
  4. SIMVASTATIN [Concomitant]

REACTIONS (2)
  - BLOOD PRESSURE INCREASED [None]
  - BLOOD PRESSURE INADEQUATELY CONTROLLED [None]
